FAERS Safety Report 9314058 (Version 1)
Quarter: 2013Q2

REPORT INFORMATION
  Report Type: Spontaneous
  Country: US (occurrence: None)
  Receive Date: 20130524
  Receipt Date: 20130524
  Transmission Date: 20140414
  Serious: Yes (Life-Threatening, Hospitalization)
  Sender: FDA-Public Use
  Company Number: None

PATIENT
  Age: 52 Year
  Sex: Male

DRUGS (1)
  1. EXENATIDE [Suspect]
     Indication: DIABETES MELLITUS
     Dates: start: 20120705, end: 20130319

REACTIONS (6)
  - Pancreatitis acute [None]
  - Pancreatitis necrotising [None]
  - Pancreatitis [None]
  - Systemic inflammatory response syndrome [None]
  - Renal failure acute [None]
  - Pulmonary oedema [None]
